FAERS Safety Report 17287222 (Version 1)
Quarter: 2020Q1

REPORT INFORMATION
  Report Type: Report from Study
  Country: US (occurrence: US)
  Receive Date: 20200120
  Receipt Date: 20200120
  Transmission Date: 20200409
  Serious: Yes (Hospitalization)
  Sender: FDA-Public Use
  Company Number: US-TEVA-2020-US-1168653

PATIENT
  Age: 57 Year
  Sex: Male
  Weight: 74.5 kg

DRUGS (31)
  1. VITAMIN B12 [Concomitant]
     Active Substance: CYANOCOBALAMIN
     Indication: VITAMIN SUPPLEMENTATION
     Dosage: 40 MILLIGRAM DAILY;
     Route: 048
     Dates: start: 2016
  2. LEUCOVORIN. [Suspect]
     Active Substance: LEUCOVORIN
     Indication: NEOPLASM
     Dosage: 400 MILLIGRAM DAILY;
     Route: 042
     Dates: start: 20190910, end: 20190910
  3. LEUCOVORIN. [Suspect]
     Active Substance: LEUCOVORIN
     Dosage: 396 MILLIGRAM DAILY;
     Route: 042
     Dates: start: 20191022, end: 20191105
  4. FLONASE [Concomitant]
     Active Substance: FLUTICASONE PROPIONATE
     Indication: SEASONAL ALLERGY
     Dosage: 2 SPRAYS (1 IN 1 D)
     Dates: start: 201901
  5. MONTELUKAST SODIUM. [Concomitant]
     Active Substance: MONTELUKAST SODIUM
     Indication: SEASONAL ALLERGY
     Dosage: 10 MILLIGRAM DAILY;
     Route: 048
     Dates: start: 201901
  6. 5-FLUOROURACIL [Suspect]
     Active Substance: FLUOROURACIL
     Dosage: (1584 MG/M2,1 IN 2 WK),INTRAVENOUS
     Route: 042
     Dates: start: 20191022, end: 20191107
  7. LOSARTAN POTASSIUM. [Concomitant]
     Active Substance: LOSARTAN POTASSIUM
     Indication: HYPERTENSION
     Dosage: 50 MILLIGRAM DAILY;
     Route: 048
     Dates: start: 2013
  8. ATROPINE SULFATE. [Concomitant]
     Active Substance: ATROPINE SULFATE
     Indication: PREMEDICATION
     Route: 042
     Dates: start: 20190910
  9. RANITIDINE HCL [Concomitant]
     Active Substance: RANITIDINE HYDROCHLORIDE
     Indication: GASTROOESOPHAGEAL REFLUX DISEASE
     Dosage: 50 MILLIGRAM DAILY;
     Route: 042
     Dates: start: 20190912, end: 20190912
  10. MAGNESIUM [Concomitant]
     Active Substance: MAGNESIUM
     Indication: HYPERMAGNESAEMIA
     Dosage: 500 MILLIGRAM DAILY;
     Route: 048
     Dates: start: 2016
  11. SUCRALFATE. [Concomitant]
     Active Substance: SUCRALFATE
     Indication: GASTROOESOPHAGEAL REFLUX DISEASE
     Dosage: 30 ML DAILY;
     Route: 048
     Dates: start: 20190913
  12. FOSAPREPITANT [Concomitant]
     Active Substance: FOSAPREPITANT
     Indication: PREMEDICATION
     Route: 042
     Dates: start: 20190910
  13. SODIUM CHLORIDE. [Concomitant]
     Active Substance: SODIUM CHLORIDE
     Route: 042
     Dates: start: 20190924, end: 20190927
  14. SODIUM CHLORIDE. [Concomitant]
     Active Substance: SODIUM CHLORIDE
     Dosage: 500 ML DAILY;
     Route: 042
     Dates: start: 20191008, end: 20191008
  15. R-LOPERAMIDE [Concomitant]
     Indication: DIARRHOEA
     Route: 048
     Dates: start: 20191001
  16. IRINOTECAN [Suspect]
     Active Substance: IRINOTECAN
     Indication: NEOPLASM
     Dosage: 180 MG/M2,1 IN 2 WK
     Route: 042
     Dates: start: 20190910, end: 20190910
  17. 5-FLUOROURACIL [Suspect]
     Active Substance: FLUOROURACIL
     Indication: NEOPLASM
     Dosage: (400 MG/M2,1 IN 2 WK),INTRAVENOUS
     Route: 042
     Dates: start: 20190910, end: 20190910
  18. PALONOSETRON HCL [Concomitant]
     Active Substance: PALONOSETRON HYDROCHLORIDE
     Indication: PREMEDICATION
     Route: 042
     Dates: start: 20190910
  19. POTASSIUM CHLORIDE CR [Concomitant]
     Active Substance: POTASSIUM CHLORIDE
     Indication: HYPOKALAEMIA
     Dosage: 20 MILLIEQUIVALENTS DAILY;
     Route: 048
     Dates: start: 20191001
  20. IRINOTECAN [Suspect]
     Active Substance: IRINOTECAN
     Dosage: 120 MG/M2,1 IN 2 WK
     Route: 042
     Dates: start: 20191022, end: 20191105
  21. ASPIRIN. [Concomitant]
     Active Substance: ASPIRIN
     Indication: CARDIAC DISORDER
     Dosage: 81 MILLIGRAM DAILY;
     Route: 048
     Dates: start: 2017
  22. VITAMIN E [Concomitant]
     Active Substance: .ALPHA.-TOCOPHEROL
     Indication: VITAMIN SUPPLEMENTATION
     Dosage: 180 MILLIGRAM DAILY;
     Route: 048
     Dates: start: 2006
  23. AFLURIA QUADRIVALENT [Concomitant]
     Indication: INFLUENZA IMMUNISATION
     Dosage: .5 ML DAILY;
     Route: 030
     Dates: start: 20191015, end: 20191015
  24. DIPHENOXYLATE-ATROPINE [Concomitant]
     Active Substance: ATROPINE\DIPHENOXYLATE
     Indication: DIARRHOEA
     Dosage: 1-2 TABLETS (AS REQUIRED)
     Route: 048
     Dates: start: 20191001
  25. MAGNESIUM SULFATE. [Concomitant]
     Active Substance: MAGNESIUM SULFATE
     Indication: HYPOMAGNESAEMIA
     Route: 042
     Dates: start: 20191029
  26. 5-FLUOROURACIL [Suspect]
     Active Substance: FLUOROURACIL
     Dosage: (2400 MG/M2,1 IN 2 WK),INTRAVENOUS
     Route: 042
     Dates: start: 20190910, end: 20190912
  27. CRESTOR [Concomitant]
     Active Substance: ROSUVASTATIN CALCIUM
     Indication: HYPERLIPIDAEMIA
     Dosage: 5 MILLIGRAM DAILY;
     Route: 048
     Dates: start: 2018
  28. NEXIUM [Concomitant]
     Active Substance: ESOMEPRAZOLE MAGNESIUM
     Indication: GASTROOESOPHAGEAL REFLUX DISEASE
     Dosage: 40 MILLIGRAM DAILY;
     Route: 048
     Dates: start: 2004
  29. SODIUM CHLORIDE. [Concomitant]
     Active Substance: SODIUM CHLORIDE
     Indication: DEHYDRATION
     Dosage: 500 ML DAILY;
     Route: 042
     Dates: start: 20190917, end: 20190917
  30. DEXAMETHASONE SODIUM [Concomitant]
     Active Substance: DEXAMETHASONE
     Indication: PREMEDICATION
     Route: 042
     Dates: start: 20190910
  31. ONDANSETRON [Concomitant]
     Active Substance: ONDANSETRON
     Indication: NAUSEA
     Route: 048
     Dates: start: 20190909

REACTIONS (1)
  - Enteritis [Recovered/Resolved]

NARRATIVE: CASE EVENT DATE: 20191110
